FAERS Safety Report 11897348 (Version 1)
Quarter: 2016Q1

REPORT INFORMATION
  Report Type: Spontaneous
  Country: BR (occurrence: BR)
  Receive Date: 20160108
  Receipt Date: 20160108
  Transmission Date: 20160526
  Serious: Yes (Hospitalization, Other)
  Sender: FDA-Public Use
  Company Number: BR-ROCHE-1689613

PATIENT
  Age: 50 Year
  Sex: Female
  Weight: 71.6 kg

DRUGS (1)
  1. ZELBORAF [Suspect]
     Active Substance: VEMURAFENIB
     Indication: METASTATIC MALIGNANT MELANOMA
     Route: 065
     Dates: start: 20150609

REACTIONS (16)
  - Decreased appetite [Not Recovered/Not Resolved]
  - Urticaria [Not Recovered/Not Resolved]
  - Dry skin [Unknown]
  - Stevens-Johnson syndrome [Not Recovered/Not Resolved]
  - Alopecia [Not Recovered/Not Resolved]
  - Dry mouth [Not Recovered/Not Resolved]
  - Headache [Not Recovered/Not Resolved]
  - Joint swelling [Not Recovered/Not Resolved]
  - Peripheral swelling [Not Recovered/Not Resolved]
  - Diarrhoea [Not Recovered/Not Resolved]
  - Vomiting [Not Recovered/Not Resolved]
  - Blister [Not Recovered/Not Resolved]
  - Arthralgia [Not Recovered/Not Resolved]
  - Nausea [Not Recovered/Not Resolved]
  - Dehydration [Unknown]
  - Dysgeusia [Not Recovered/Not Resolved]

NARRATIVE: CASE EVENT DATE: 201511
